FAERS Safety Report 5505350-3 (Version None)
Quarter: 2007Q4

REPORT INFORMATION
  Report Type: 
  Country: None (occurrence: None)
  Receive Date: 20071102
  Receipt Date: 20071022
  Transmission Date: 20080405
  Serious: Yes (Other)
  Sender: FDA-Public Use
  Company Number: JP-JNJFOC-20071006774

PATIENT
  Sex: Female

DRUGS (2)
  1. ITRIZOLE [Suspect]
     Route: 048
  2. ITRIZOLE [Suspect]
     Indication: DRUG USE FOR UNKNOWN INDICATION
     Route: 048

REACTIONS (2)
  - PHARYNGOLARYNGEAL PAIN [None]
  - PYREXIA [None]
